FAERS Safety Report 6417826-5 (Version None)
Quarter: 2009Q4

REPORT INFORMATION
  Report Type: 
  Country: None (occurrence: None)
  Receive Date: 20091028
  Receipt Date: 20091026
  Transmission Date: 20100525
  Serious: Yes (Other)
  Sender: FDA-Public Use
  Company Number: US-GENENTECH-292684

PATIENT
  Sex: Female
  Weight: 80.272 kg

DRUGS (5)
  1. HERCEPTIN [Suspect]
     Indication: BREAST CANCER
     Dosage: 6 MG/KG, UNK
     Route: 042
  2. HERCEPTIN [Suspect]
     Dosage: 2 MG/KG, 1/WEEK
     Route: 042
     Dates: start: 20090609
  3. HERCEPTIN [Suspect]
     Dosage: 482 MG, Q3W
     Route: 042
     Dates: start: 20091020
  4. TAXOTERE [Suspect]
     Indication: CHEMOTHERAPY
     Dosage: UNK
  5. CARBOPLATIN [Concomitant]
     Indication: CHEMOTHERAPY
     Dosage: UNK

REACTIONS (3)
  - CHILLS [None]
  - PERICARDIAL EFFUSION [None]
  - TREMOR [None]
